FAERS Safety Report 7340803-7 (Version None)
Quarter: 2011Q1

REPORT INFORMATION
  Report Type: 
  Country: None (occurrence: None)
  Receive Date: 20110301
  Receipt Date: 20110222
  Transmission Date: 20110831
  Serious: Yes (Disabling, Other)
  Sender: FDA-Public Use
  Company Number: 2011SP008425

PATIENT
  Age: 55 Year
  Sex: Female

DRUGS (1)
  1. SAPHRIS [Suspect]
     Indication: BIPOLAR DISORDER
     Dosage: 5 MG, SL
     Route: 060
     Dates: start: 20110131, end: 20110131

REACTIONS (3)
  - LOSS OF CONSCIOUSNESS [None]
  - HEAD INJURY [None]
  - CONCUSSION [None]
